FAERS Safety Report 8440046-X (Version None)
Quarter: 2012Q2

REPORT INFORMATION
  Report Type: 
  Country: None (occurrence: None)
  Receive Date: 20120615
  Receipt Date: 20120313
  Transmission Date: 20120825
  Serious: Yes (Hospitalization)
  Sender: FDA-Public Use
  Company Number: DE-BAXTER-2012BAX002272

PATIENT
  Age: 39 Year
  Sex: Male

DRUGS (7)
  1. EXTRANEAL [Suspect]
  2. PHYSIOSOL IN PLASTIC CONTAINER [Suspect]
     Route: 033
     Dates: start: 20110805
  3. EXTRANEAL [Suspect]
     Route: 033
     Dates: start: 20080418
  4. NUTRINEAL [Suspect]
  5. VITAMIN D                          /00318501/ [Concomitant]
     Route: 065
  6. NUTRINEAL [Suspect]
     Route: 033
     Dates: start: 20080418
  7. PHYSIOSOL IN PLASTIC CONTAINER [Suspect]
     Route: 033
     Dates: start: 20080418, end: 20110805

REACTIONS (1)
  - ULTRAFILTRATION FAILURE [None]
